FAERS Safety Report 12631201 (Version 2)
Quarter: 2016Q3

REPORT INFORMATION
  Report Type: Spontaneous
  Country: US (occurrence: US)
  Receive Date: 20160808
  Receipt Date: 20160808
  Transmission Date: 20161109
  Serious: No
  Sender: FDA-Public Use
  Company Number: US-BEH-2015052753

PATIENT
  Age: 20 Year
  Sex: Male
  Weight: 54 kg

DRUGS (25)
  1. DIPHENHYDRAMINE. [Concomitant]
     Active Substance: DIPHENHYDRAMINE
  2. NYSTATIN. [Concomitant]
     Active Substance: NYSTATIN
  3. CLONIDINE. [Concomitant]
     Active Substance: CLONIDINE
  4. TOPAMAX [Concomitant]
     Active Substance: TOPIRAMATE
  5. HIZENTRA [Suspect]
     Active Substance: HUMAN IMMUNOGLOBULIN G
     Indication: IMMUNODEFICIENCY COMMON VARIABLE
     Dosage: 1 GM 5 ML VIAL
     Route: 058
  6. MAXALT [Concomitant]
     Active Substance: RIZATRIPTAN BENZOATE
  7. DIASTAT [Concomitant]
     Active Substance: DIAZEPAM
  8. FLAXSEED [Concomitant]
     Active Substance: FLAX SEED
  9. EPIPEN [Concomitant]
     Active Substance: EPINEPHRINE
     Indication: ANAPHYLACTIC REACTION
  10. LMX [Concomitant]
     Active Substance: LIDOCAINE
  11. BENEFIBER [Concomitant]
     Active Substance: STARCH, WHEAT
  12. ZOFRAN [Concomitant]
     Active Substance: ONDANSETRON HYDROCHLORIDE
  13. PRILOSEC [Concomitant]
     Active Substance: OMEPRAZOLE MAGNESIUM
  14. CLARITIN [Concomitant]
     Active Substance: LORATADINE
  15. BACTROBAN [Concomitant]
     Active Substance: MUPIROCIN\MUPIROCIN CALCIUM
  16. VENTOLIN [Concomitant]
     Active Substance: ALBUTEROL SULFATE
  17. RETIN-A [Concomitant]
     Active Substance: TRETINOIN
  18. ACETAMINOPHEN. [Concomitant]
     Active Substance: ACETAMINOPHEN
  19. ALBUTEROL. [Concomitant]
     Active Substance: ALBUTEROL
  20. MULTIVITAMINS [Concomitant]
     Active Substance: VITAMINS
  21. DEXEDRINE [Concomitant]
     Active Substance: DEXTROAMPHETAMINE SULFATE
  22. BENZACLIN [Concomitant]
     Active Substance: BENZOYL PEROXIDE\CLINDAMYCIN PHOSPHATE
  23. ZADITOR [Concomitant]
     Active Substance: KETOTIFEN FUMARATE
  24. CALCIUM [Concomitant]
     Active Substance: CALCIUM
  25. KEPPRA [Concomitant]
     Active Substance: LEVETIRACETAM

REACTIONS (1)
  - Urticaria [Recovered/Resolved]

NARRATIVE: CASE EVENT DATE: 20150719
